FAERS Safety Report 7858465-9 (Version None)
Quarter: 2011Q4

REPORT INFORMATION
  Report Type: 
  Country: None (occurrence: None)
  Receive Date: 20111027
  Receipt Date: 20111020
  Transmission Date: 20120403
  Serious: Yes (Hospitalization)
  Sender: FDA-Public Use
  Company Number: US-JNJFOC-20111009314

PATIENT
  Age: 50 Year
  Sex: Male

DRUGS (4)
  1. EPZICOM [Concomitant]
     Indication: HIV INFECTION
     Route: 065
  2. PREZISTA [Suspect]
     Indication: HIV INFECTION
     Route: 048
  3. OMEPRAZOLE [Concomitant]
     Route: 065
  4. NORVIR [Concomitant]
     Indication: HIV INFECTION
     Route: 048

REACTIONS (1)
  - HENOCH-SCHONLEIN PURPURA [None]
